FAERS Safety Report 6750563 (Version 2)
Quarter: 2013Q4

REPORT INFORMATION
  Report Type: Spontaneous
  Country: US (occurrence: None)
  Receive Date: 20080826
  Receipt Date: 20131017
  Transmission Date: 20140711
  Serious: Yes (Hospitalization, Disabling, Other)
  Sender: FDA-Public Use
  Company Number: 2008S1007522

PATIENT
  Age: 63 Year
  Sex: Male
  Weight: 64.41 kg

DRUGS (15)
  1. SODIUM PHOSPHATE [Suspect]
     Indication: COLONOSCOPY
     Dosage: 90ML 2 IN 24 HRS, PO.
     Route: 048
     Dates: start: 200802, end: 200802
  2. METFORMIN HYDROCHLORIDE [Concomitant]
  3. BYETTA [Concomitant]
  4. ZETIA [Concomitant]
  5. LANTUS [Concomitant]
  6. AVAPRO [Concomitant]
  7. ACTOPLUS MET (METFORMIN HYDROCHLORIDE, PIOGLITAZONE HYDROCHLORIDE) [Concomitant]
  8. LEVITRA (VARDENAFIL  HYDROCHLORIDE) (20 MILLIGRAM) [Concomitant]
  9. ALPHAGAN (BRIMONIDINE TARTRATE) (BRIMONIDINE TARTRATE) [Concomitant]
  10. MULTIVITAMINS (ERGOCALCIFEROL, ASCORBIC ACID, PYRIDOXINE HYDROCHLIRDE, THIAMINE HYDROCHLORIDE, RETINOL, RIBOFLAVIN, NICOTINAMIDE, CALCIUM PANTOTHENATE) [Concomitant]
  11. VITAMIN B12 (CYANOCOBALMIN) (1000 MICOGRAMS) [Concomitant]
  12. ASPIRIN (ACETYLSALICYLIC ACID) [Concomitant]
  13. CRESTOR (ROSUVASTATIN CALCIUM) (5 MILLIGRAM) [Concomitant]
  14. PREVACID (LANSOPRAZOLE) (30 MILLIGRAMS) [Concomitant]
  15. VITRON-C (ASCORBIC ACID, FERROUS FUMARATE) [Concomitant]

REACTIONS (19)
  - Renal failure [None]
  - Hyperphosphataemia [None]
  - Dehydration [None]
  - Dialysis [None]
  - Feeling abnormal [None]
  - Lactic acidosis [None]
  - Respiratory failure [None]
  - Acute phosphate nephropathy [None]
  - Cholecystitis [None]
  - Arteriosclerosis [None]
  - Inappropriate schedule of drug administration [None]
  - Drug prescribing error [None]
  - Metabolic acidosis [None]
  - Back pain [None]
  - Lethargy [None]
  - Somnolence [None]
  - Haematemesis [None]
  - Diarrhoea [None]
  - Nausea [None]
